FAERS Safety Report 20931896 (Version 1)
Quarter: 2022Q2

REPORT INFORMATION
  Report Type: Spontaneous
  Country: CA (occurrence: CA)
  Receive Date: 20220608
  Receipt Date: 20220608
  Transmission Date: 20220721
  Serious: Yes (Hospitalization)
  Sender: FDA-Public Use
  Company Number: None

PATIENT
  Age: 76 Year
  Sex: Male

DRUGS (9)
  1. ROSUVASTATIN CALCIUM [Suspect]
     Active Substance: ROSUVASTATIN CALCIUM
     Indication: Acute myocardial infarction
     Route: 048
  2. ALLOPURINOL [Concomitant]
     Active Substance: ALLOPURINOL
  3. ASPIRIN [Concomitant]
     Active Substance: ASPIRIN
     Dosage: STRENGTH: 81MG
  4. BISOPROLOL [Concomitant]
     Active Substance: BISOPROLOL
  5. EZETIMIBE [Concomitant]
     Active Substance: EZETIMIBE
  6. METFORMIN [Concomitant]
     Active Substance: METFORMIN HYDROCHLORIDE
  7. RAMIPRIL [Concomitant]
     Active Substance: RAMIPRIL
     Route: 065
  8. ROSUVASTATIN [Concomitant]
     Active Substance: ROSUVASTATIN
     Route: 065
  9. TICAGRELOR [Concomitant]
     Active Substance: TICAGRELOR

REACTIONS (5)
  - Acute kidney injury [Unknown]
  - Asthenia [Unknown]
  - End stage renal disease [Unknown]
  - Intentional product use issue [Unknown]
  - Rhabdomyolysis [Unknown]
